FAERS Safety Report 24589362 (Version 1)
Quarter: 2024Q4

REPORT INFORMATION
  Report Type: Spontaneous
  Country: US (occurrence: None)
  Receive Date: 20241106
  Receipt Date: 20241106
  Transmission Date: 20250115
  Serious: Yes (Hospitalization)
  Sender: Public
  Company Number: None

PATIENT
  Age: 46 Year
  Sex: Male

DRUGS (2)
  1. CREON [Suspect]
     Active Substance: PANCRELIPASE AMYLASE\PANCRELIPASE LIPASE\PANCRELIPASE PROTEASE
     Indication: Cystic fibrosis
     Dosage: OTHER FREQUENCY : WITH MEALS + SNACK;?
     Route: 048
  2. Trikafta 100mg/50mg/75mg [Concomitant]

REACTIONS (2)
  - Treatment noncompliance [None]
  - Intestinal obstruction [None]

NARRATIVE: CASE EVENT DATE: 20241105
